FAERS Safety Report 5503954-5 (Version None)
Quarter: 2007Q4

REPORT INFORMATION
  Report Type: 
  Country: None (occurrence: None)
  Receive Date: 20071030
  Receipt Date: 20071030
  Transmission Date: 20080405
  Serious: Yes (Hospitalization)
  Sender: FDA-Public Use
  Company Number: None

PATIENT
  Age: 80 Year
  Sex: Male
  Weight: 68.4932 kg

DRUGS (3)
  1. WARFARIN SODIUM [Suspect]
     Indication: PULMONARY EMBOLISM
     Dosage: 5MG  HS  PO
     Route: 048
     Dates: start: 20070105
  2. MOXIFLOXACIN HCL [Suspect]
     Indication: PNEUMONIA
     Dosage: 400MG  EVERY DAY  PO
     Route: 048
     Dates: start: 20070106
  3. AMOXICILLIN + CLAVULANATE POTASSIUM [Concomitant]

REACTIONS (5)
  - FALL [None]
  - GASTRIC HAEMORRHAGE [None]
  - HAEMORRHAGE INTRACRANIAL [None]
  - NAUSEA [None]
  - VOMITING [None]
